FAERS Safety Report 15496016 (Version 6)
Quarter: 2018Q4

REPORT INFORMATION
  Report Type: Spontaneous
  Country: US (occurrence: US)
  Receive Date: 20181012
  Receipt Date: 20181213
  Transmission Date: 20190205
  Serious: Yes (Hospitalization, Other)
  Sender: FDA-Public Use
  Company Number: US-ELI_LILLY_AND_COMPANY-US201810001168

PATIENT
  Age: 49 Year
  Sex: Female
  Weight: 70 kg

DRUGS (7)
  1. UPTRAVI [Suspect]
     Active Substance: SELEXIPAG
     Indication: PULMONARY ARTERIAL HYPERTENSION
     Dosage: 1600 UG, BID
     Route: 065
     Dates: start: 20170612, end: 20181010
  2. OXYGEN. [Concomitant]
     Active Substance: OXYGEN
     Indication: PRODUCT USED FOR UNKNOWN INDICATION
     Dosage: UNK UNK, UNKNOWN
     Route: 065
  3. REMODULIN [Suspect]
     Active Substance: TREPROSTINIL
     Dosage: 18 NG, UNKNOWN
     Route: 065
     Dates: start: 20181105
  4. REMODULIN [Suspect]
     Active Substance: TREPROSTINIL
     Dosage: 16 NG, UNKNOWN
     Route: 042
     Dates: start: 20181107
  5. REMODULIN [Suspect]
     Active Substance: TREPROSTINIL
     Indication: PULMONARY ARTERIAL HYPERTENSION
     Dosage: 14 UG/KG, UNKNOWN
     Route: 058
     Dates: start: 20181010
  6. ADCIRCA [Suspect]
     Active Substance: TADALAFIL
     Indication: PULMONARY ARTERIAL HYPERTENSION
     Dosage: 40 MG, DAILY
     Route: 065
  7. AMBRISENTAN [Suspect]
     Active Substance: AMBRISENTAN
     Indication: PULMONARY ARTERIAL HYPERTENSION
     Dosage: 10 MG, DAILY
     Route: 065
     Dates: start: 20141201

REACTIONS (7)
  - Pulmonary hypertension [Not Recovered/Not Resolved]
  - Fluid retention [Recovering/Resolving]
  - Chest pain [Not Recovered/Not Resolved]
  - Condition aggravated [Unknown]
  - Dyspnoea [Unknown]
  - Catheterisation cardiac [Recovered/Resolved]
  - Palpitations [Not Recovered/Not Resolved]

NARRATIVE: CASE EVENT DATE: 20180827
